FAERS Safety Report 13977620 (Version 1)
Quarter: 2017Q3

REPORT INFORMATION
  Report Type: Spontaneous
  Country: US (occurrence: US)
  Receive Date: 20170915
  Receipt Date: 20170915
  Transmission Date: 20171128
  Serious: No
  Sender: FDA-Public Use
  Company Number: US-BAYER-2017-175254

PATIENT
  Sex: Female

DRUGS (1)
  1. ALEVE PM [Suspect]
     Active Substance: DIPHENHYDRAMINE HYDROCHLORIDE\NAPROXEN SODIUM
     Indication: SLEEP DISORDER THERAPY
     Dosage: 2 DF, UNK
     Route: 048
     Dates: start: 201708, end: 201709

REACTIONS (3)
  - Insomnia [Unknown]
  - Drug ineffective [Unknown]
  - Product use in unapproved indication [Unknown]
